FAERS Safety Report 5207310-9 (Version None)
Quarter: 2007Q1

REPORT INFORMATION
  Report Type: 
  Country: None (occurrence: None)
  Receive Date: 20070112
  Receipt Date: 20070109
  Transmission Date: 20070707
  Serious: Yes (Other)
  Sender: FDA-Public Use
  Company Number: 2004UW17336

PATIENT
  Age: 41 Year
  Sex: Male

DRUGS (7)
  1. CRESTOR [Suspect]
     Indication: BLOOD CHOLESTEROL
     Route: 048
  2. GRAPEFRUIT JUICE [Interacting]
     Indication: WEIGHT DECREASED
  3. NEPHRIL [Concomitant]
  4. MS CONTIN [Concomitant]
     Route: 048
  5. PROCHLORPERAZINE [Concomitant]
     Dosage: 10 MG/Q6H/PRN
     Route: 048
  6. CLONAZEPAM [Concomitant]
     Dosage: 0.5-1 MG QHS/PRN
  7. VALPROIC ACID [Concomitant]

REACTIONS (9)
  - BLOOD CREATINE PHOSPHOKINASE INCREASED [None]
  - CARDIAC FAILURE CONGESTIVE [None]
  - DRUG INTERACTION [None]
  - FATIGUE [None]
  - LIVER FUNCTION TEST ABNORMAL [None]
  - OEDEMA PERIPHERAL [None]
  - PAIN [None]
  - PAIN IN EXTREMITY [None]
  - PROTEIN TOTAL DECREASED [None]
